FAERS Safety Report 8448274-4 (Version None)
Quarter: 2012Q2

REPORT INFORMATION
  Report Type: 
  Country: None (occurrence: None)
  Receive Date: 20120619
  Receipt Date: 20120611
  Transmission Date: 20120825
  Serious: Yes (Death, Hospitalization)
  Sender: FDA-Public Use
  Company Number: JP-PFIZER INC-2012097556

PATIENT
  Age: 65 Year
  Sex: Male
  Weight: 77 kg

DRUGS (14)
  1. ALLOPURINOL [Suspect]
     Indication: HYPERURICAEMIA
     Dosage: UNK
     Route: 048
     Dates: start: 20120301
  2. AMIODARONE HYDROCHLORIDE [Concomitant]
     Indication: CARDIAC FAILURE CHRONIC
     Dosage: UNK
     Route: 048
     Dates: end: 20120406
  3. LANSOPRAZOLE [Concomitant]
     Indication: GASTRITIS
     Dosage: UNK
     Route: 048
  4. TRICHLORMETHIAZIDE [Concomitant]
     Indication: HYPERTENSION
     Dosage: UNK
     Route: 048
     Dates: end: 20120406
  5. ALDACTONE [Concomitant]
     Indication: CARDIAC FAILURE CHRONIC
     Dosage: UNK
     Route: 048
     Dates: end: 20120406
  6. LASIX [Concomitant]
     Indication: CARDIAC FAILURE CHRONIC
     Dosage: UNK
     Route: 048
     Dates: end: 20120406
  7. PIMOBENDAN [Concomitant]
     Indication: CARDIAC FAILURE CHRONIC
     Dosage: UNK
     Route: 048
     Dates: end: 20120406
  8. AMARYL [Concomitant]
     Indication: DIABETES MELLITUS
     Dosage: UNK
     Route: 048
  9. ASPIRIN [Concomitant]
     Indication: MYOCARDIAL INFARCTION
     Dosage: UNK
     Route: 048
     Dates: end: 20120406
  10. WARFARIN [Concomitant]
     Indication: ATRIAL FIBRILLATION
     Dosage: UNK
     Route: 048
  11. JANUVIA [Concomitant]
     Indication: DIABETES MELLITUS
     Dosage: UNK
     Route: 048
  12. LIPITOR [Suspect]
     Indication: HYPERLIPIDAEMIA
     Dosage: 10 MG, 1X/DAY
     Route: 048
     Dates: start: 20120403, end: 20120406
  13. CARVEDILOL [Concomitant]
     Indication: CARDIAC FAILURE CHRONIC
     Dosage: UNK
     Route: 048
     Dates: end: 20120406
  14. PLAVIX [Concomitant]
     Indication: MYOCARDIAL INFARCTION
     Dosage: UNK
     Route: 048
     Dates: end: 20120406

REACTIONS (2)
  - VENTRICULAR FIBRILLATION [None]
  - STEVENS-JOHNSON SYNDROME [None]
